FAERS Safety Report 8538233 (Version 3)
Quarter: 2012Q4

REPORT INFORMATION
  Report Type: 
  Country: CA (occurrence: CA)
  Receive Date: 20120501
  Receipt Date: 20121221
  Transmission Date: 20130627
  Serious: Yes (Hospitalization, Other)
  Sender: FDA-Public Use
  Company Number: CA-JNJFOC-20120409404

PATIENT
  Age: 17 Year
  Sex: Female
  Weight: 53 kg

DRUGS (4)
  1. REMICADE [Suspect]
     Indication: CROHN^S DISEASE
     Route: 042
     Dates: start: 20120320
  2. REMICADE [Suspect]
     Indication: CROHN^S DISEASE
     Route: 042
     Dates: start: 20120419
  3. ALL OTHER THERAPEUTICS [Concomitant]
     Route: 065
  4. SOLUCORTEF [Concomitant]
     Indication: PREMEDICATION
     Route: 065
     Dates: start: 201203

REACTIONS (19)
  - Blood pressure decreased [Unknown]
  - Palpitations [Recovered/Resolved]
  - Tachycardia [Unknown]
  - Intestinal resection [Recovering/Resolving]
  - Infusion related reaction [Recovered/Resolved]
  - Dyspnoea [Recovered/Resolved]
  - Chest discomfort [Recovered/Resolved]
  - Post procedural infection [Not Recovered/Not Resolved]
  - Abdominal pain upper [Not Recovered/Not Resolved]
  - Localised oedema [Not Recovered/Not Resolved]
  - Dyspnoea [Recovered/Resolved]
  - Oropharyngeal pain [Recovered/Resolved]
  - Asthenia [Not Recovered/Not Resolved]
  - Drug ineffective [Unknown]
  - Flushing [Recovered/Resolved]
  - Cold sweat [Recovered/Resolved]
  - Headache [Recovered/Resolved]
  - Malaise [Not Recovered/Not Resolved]
  - Fatigue [Not Recovered/Not Resolved]
